FAERS Safety Report 8579496-X (Version None)
Quarter: 2012Q3

REPORT INFORMATION
  Report Type: 
  Country: None (occurrence: None)
  Receive Date: 20120808
  Receipt Date: 20120730
  Transmission Date: 20120928
  Serious: Yes (Other)
  Sender: FDA-Public Use
  Company Number: TR-GLAXOSMITHKLINE-B0770605A

PATIENT
  Age: 51 Year
  Sex: Female

DRUGS (2)
  1. METOPROLOL TARTRATE [Concomitant]
     Indication: HYPERTENSION
     Route: 065
  2. BUPROPION HCL [Suspect]
     Indication: DEPRESSION
     Route: 048

REACTIONS (6)
  - ANXIETY [None]
  - HALLUCINATION, VISUAL [None]
  - POOR QUALITY SLEEP [None]
  - INSOMNIA [None]
  - ANHEDONIA [None]
  - IRRITABILITY [None]
